FAERS Safety Report 5758085-6 (Version None)
Quarter: 2008Q2

REPORT INFORMATION
  Report Type: 
  Country: None (occurrence: None)
  Receive Date: 20080602
  Receipt Date: 20080602
  Transmission Date: 20081010
  Serious: No
  Sender: FDA-Public Use
  Company Number: None

PATIENT
  Age: 66 Year
  Sex: Male
  Weight: 87.5442 kg

DRUGS (1)
  1. CELEBREX [Suspect]
     Indication: PAIN
     Dates: start: 20080201, end: 20080202

REACTIONS (2)
  - CEREBROVASCULAR ACCIDENT [None]
  - HYPOTENSION [None]
